FAERS Safety Report 4320563-4 (Version None)
Quarter: 2004Q1

REPORT INFORMATION
  Report Type: 
  Country: None (occurrence: None)
  Receive Date: 20040317
  Receipt Date: 20040310
  Transmission Date: 20041129
  Serious: Yes (Hospitalization)
  Sender: FDA-Public Use
  Company Number: 2004UW02283

PATIENT
  Age: 73 Year
  Sex: Female

DRUGS (4)
  1. AMITRIPTYLINE HCL [Suspect]
     Dosage: 25 MG HS PO
     Route: 048
     Dates: start: 20030801, end: 20031101
  2. CLOZAPINE [Suspect]
     Indication: PARKINSON'S DISEASE
     Dosage: 75 MG QD PO
     Route: 048
     Dates: start: 20030801, end: 20031101
  3. PAXIL [Suspect]
     Dosage: 20 MG PO
     Route: 048
  4. STALEVO 100 [Suspect]
     Dosage: DOSAGE DECREASED FROM 4 TO 3 TABLETS DAILY

REACTIONS (7)
  - BOWEL SOUNDS ABNORMAL [None]
  - CONFUSIONAL STATE [None]
  - DISORIENTATION [None]
  - FALL [None]
  - NAUSEA [None]
  - PNEUMONIA ASPIRATION [None]
  - VOMITING [None]
